FAERS Safety Report 14246076 (Version 1)
Quarter: 2017Q4

REPORT INFORMATION
  Report Type: Spontaneous
  Country: US (occurrence: US)
  Receive Date: 20171204
  Receipt Date: 20171204
  Transmission Date: 20180321
  Serious: Yes (Death)
  Sender: FDA-Public Use
  Company Number: US-HORIZON-PRO-0110-2017

PATIENT
  Age: 28 Year
  Sex: Female

DRUGS (1)
  1. PROCYSBI [Suspect]
     Active Substance: CYSTEAMINE BITARTRATE
     Indication: PRODUCT USED FOR UNKNOWN INDICATION
     Dates: start: 20150318, end: 20160216

REACTIONS (1)
  - Amino acid metabolism disorder [Fatal]

NARRATIVE: CASE EVENT DATE: 201711
